FAERS Safety Report 11859149 (Version 1)
Quarter: 2015Q4

REPORT INFORMATION
  Report Type: Report from Study
  Country: US (occurrence: US)
  Receive Date: 20151222
  Receipt Date: 20151222
  Transmission Date: 20160305
  Serious: Yes (Other)
  Sender: FDA-Public Use
  Company Number: US-AMGEN-USASL2015134584

PATIENT
  Age: 60 Year
  Sex: Female

DRUGS (1)
  1. REPATHA [Suspect]
     Active Substance: EVOLOCUMAB
     Indication: BLOOD CHOLESTEROL INCREASED
     Dosage: UNK
     Route: 065
     Dates: start: 20151203

REACTIONS (7)
  - Contusion [Unknown]
  - Throat tightness [Unknown]
  - Hypoaesthesia oral [Recovered/Resolved]
  - Fracture delayed union [Unknown]
  - Stress fracture [Unknown]
  - Dysgeusia [Unknown]
  - Tongue disorder [Unknown]

NARRATIVE: CASE EVENT DATE: 201512
